FAERS Safety Report 23688648 (Version 1)
Quarter: 2024Q1

REPORT INFORMATION
  Report Type: Spontaneous
  Country: US (occurrence: US)
  Receive Date: 20240329
  Receipt Date: 20240329
  Transmission Date: 20240409
  Serious: No
  Sender: FDA-Public Use
  Company Number: US-PFIZER INC-PV202400041875

PATIENT
  Age: 82 Year
  Sex: Female
  Weight: 61.451 kg

DRUGS (3)
  1. GEMCITABINE HYDROCHLORIDE [Suspect]
     Active Substance: GEMCITABINE HYDROCHLORIDE
     Indication: Gallbladder adenocarcinoma
     Dosage: SHE IS ON CYCLE 3 DAY 4
  2. DURVALUMAB [Suspect]
     Active Substance: DURVALUMAB
     Indication: Gallbladder adenocarcinoma
     Dosage: SHE IS ON CYCLE 3 DAY 4
  3. CISPLATIN [Suspect]
     Active Substance: CISPLATIN
     Indication: Gallbladder adenocarcinoma
     Dosage: SHE IS ON CYCLE 3 DAY 4

REACTIONS (6)
  - Fatigue [Unknown]
  - Dizziness [Unknown]
  - Haemoglobin decreased [Unknown]
  - Decreased appetite [Unknown]
  - Weight decreased [Unknown]
  - Neoplasm progression [Unknown]

NARRATIVE: CASE EVENT DATE: 20240314
